FAERS Safety Report 18961661 (Version 15)
Quarter: 2023Q1

REPORT INFORMATION
  Report Type: Other
  Country: JP (occurrence: JP)
  Receive Date: 20210303
  Receipt Date: 20230213
  Transmission Date: 20230417
  Serious: Yes (Hospitalization, Other)
  Sender: FDA-Public Use
  Company Number: JP-CHUGAI-A2021007042ROCHE

PATIENT
  Age: 37 Year
  Sex: Female
  Weight: 48.8 kg

DRUGS (15)
  1. SATRALIZUMAB [Suspect]
     Active Substance: SATRALIZUMAB
     Indication: Neuromyelitis optica spectrum disorder
     Route: 058
     Dates: start: 20201222, end: 20210125
  2. SATRALIZUMAB [Suspect]
     Active Substance: SATRALIZUMAB
     Route: 058
     Dates: start: 20210218, end: 20210325
  3. SATRALIZUMAB [Suspect]
     Active Substance: SATRALIZUMAB
     Dosage: 120 MILLIGRAM, ONCE/MONTH?MOST RECENT DOSE: 26/MAY/2022
     Route: 058
     Dates: start: 20211209
  4. RITUXIMAB [Suspect]
     Active Substance: RITUXIMAB
     Indication: Neuromyelitis optica spectrum disorder
     Dosage: UNK
     Route: 041
     Dates: start: 20220819
  5. AZATHIOPRINE [Concomitant]
     Active Substance: AZATHIOPRINE
     Dates: start: 20180816, end: 20210622
  6. VONOPRAZAN FUMARATE [Concomitant]
     Active Substance: VONOPRAZAN FUMARATE
     Dosage: 20 MILLIGRAM, QD
     Route: 048
     Dates: start: 20211223
  7. ACTONEL [Concomitant]
     Active Substance: RISEDRONATE SODIUM
     Dosage: 75 MILLIGRAM, ONCE/MONTH
     Route: 048
     Dates: start: 20211223
  8. CHLORPHENESIN CARBAMATE [Concomitant]
     Active Substance: CHLORPHENESIN CARBAMATE
     Dosage: 250 MILLIGRAM, BID
     Route: 048
     Dates: start: 20211223
  9. OMEGA-3-ACID ETHYL ESTERS [Concomitant]
     Active Substance: OMEGA-3-ACID ETHYL ESTERS
     Dosage: 2 GRAM, QD
     Route: 048
     Dates: start: 20211223
  10. GABAPENTIN [Concomitant]
     Active Substance: GABAPENTIN
     Dosage: 200 MILLIGRAM, BID
     Route: 048
     Dates: start: 20211223
  11. PHENYTOIN SODIUM [Concomitant]
     Active Substance: PHENYTOIN SODIUM
     Dosage: 100 MILLIGRAM, QD
     Route: 048
     Dates: start: 20211223
  12. UREA [Concomitant]
     Active Substance: UREA
     Dosage: UNK, QD
     Route: 003
     Dates: start: 20211223
  13. SODIUM GUALENATE [Concomitant]
     Active Substance: SODIUM GUALENATE
     Dosage: UNK, QID
  14. ROXITHROMYCIN [Concomitant]
     Active Substance: ROXITHROMYCIN
     Dosage: UNK
     Route: 048
  15. FUROSEMIDE [Concomitant]
     Active Substance: FUROSEMIDE
     Dosage: UNK
     Route: 065
     Dates: start: 202202

REACTIONS (18)
  - Melaena [Recovered/Resolved]
  - Neuromyelitis optica spectrum disorder [Recovered/Resolved]
  - Neuromyelitis optica spectrum disorder [Recovered/Resolved with Sequelae]
  - Neuromyelitis optica spectrum disorder [Unknown]
  - Sinusitis [Recovered/Resolved]
  - Cystitis [Recovered/Resolved]
  - Fall [Unknown]
  - Abdominal pain lower [Recovered/Resolved]
  - Abdominal pain [Unknown]
  - Malaise [Recovered/Resolved]
  - Diarrhoea [Recovering/Resolving]
  - Diarrhoea [Recovered/Resolved]
  - Sinusitis [Recovering/Resolving]
  - Cystitis [Not Recovered/Not Resolved]
  - Fall [Unknown]
  - Tonsillitis [Recovered/Resolved]
  - Joint injury [Recovered/Resolved]
  - Inappropriate schedule of product administration [Unknown]

NARRATIVE: CASE EVENT DATE: 20201223
